FAERS Safety Report 9792018 (Version 1)
Quarter: 2014Q1

REPORT INFORMATION
  Report Type: Spontaneous
  Country: IT (occurrence: IT)
  Receive Date: 20140102
  Receipt Date: 20140102
  Transmission Date: 20141002
  Serious: Yes (Hospitalization)
  Sender: FDA-Public Use
  Company Number: IT-TEVA-453021ISR

PATIENT
  Age: 83 Year
  Sex: Female

DRUGS (4)
  1. CARVEDILOL [Suspect]
     Indication: ATRIAL FIBRILLATION
     Dosage: 6.25 MG DAILY
     Route: 048
     Dates: start: 20100101, end: 20131120
  2. LANOXIN - 0,125 MG COMPRESSE [Suspect]
     Indication: ATRIAL FIBRILLATION
     Route: 048
     Dates: start: 20100101, end: 20131120
  3. COUMADIN - 5 MG COMPRESSE [Concomitant]
     Indication: ATRIAL FIBRILLATION
  4. LASIX [Concomitant]
     Indication: PRODUCT USED FOR UNKNOWN INDICATION

REACTIONS (1)
  - Nodal arrhythmia [Recovered/Resolved]
